FAERS Safety Report 19003484 (Version 1)
Quarter: 2021Q1

REPORT INFORMATION
  Report Type: Spontaneous
  Country: US (occurrence: US)
  Receive Date: 20210312
  Receipt Date: 20210312
  Transmission Date: 20210420
  Serious: No
  Sender: FDA-Public Use
  Company Number: US-OCULAR THERAPEUTIX-2021OCX00006

PATIENT

DRUGS (1)
  1. DEXTENZA [Suspect]
     Active Substance: DEXAMETHASONE
     Dosage: UNK
     Dates: start: 20201102

REACTIONS (4)
  - Ocular hyperaemia [Unknown]
  - Photophobia [Unknown]
  - Vitreous floaters [Unknown]
  - Eye pain [Unknown]

NARRATIVE: CASE EVENT DATE: 202011
